FAERS Safety Report 8988000 (Version 1)
Quarter: 2012Q4

REPORT INFORMATION
  Report Type: 
  Country: GB (occurrence: GB)
  Receive Date: 20121227
  Receipt Date: 20121227
  Transmission Date: 20130627
  Serious: Yes (Death)
  Sender: FDA-Public Use
  Company Number: GB-GILEAD-2012-0066607

PATIENT
  Age: 38 Year
  Sex: Male

DRUGS (2)
  1. VISTIDE [Suspect]
     Indication: ADENOVIRUS INFECTION
  2. HYDROCORTISONE [Concomitant]
     Indication: ADDISON^S DISEASE

REACTIONS (2)
  - Drug ineffective for unapproved indication [Fatal]
  - Renal failure [Fatal]
